FAERS Safety Report 4693569-3 (Version None)
Quarter: 2005Q2

REPORT INFORMATION
  Report Type: 
  Country: None (occurrence: None)
  Receive Date: 20050617
  Receipt Date: 20050517
  Transmission Date: 20051028
  Serious: Yes (Other)
  Sender: FDA-Public Use
  Company Number: JP-ROCHE-405325

PATIENT
  Age: 88 Year
  Sex: Male

DRUGS (7)
  1. TAMIFLU [Suspect]
     Route: 048
     Dates: start: 20050416, end: 20050418
  2. TAMIFLU [Suspect]
     Route: 048
     Dates: start: 20050419, end: 20050419
  3. GASTER (JAPAN) [Concomitant]
     Route: 048
     Dates: start: 20050416, end: 20050422
  4. CEFTRIAXZONE SODIUM [Concomitant]
     Route: 042
     Dates: start: 20050416, end: 20050417
  5. CALONAL [Concomitant]
  6. BANAN [Concomitant]
     Route: 048
     Dates: start: 20050418, end: 20050425
  7. ZITHROMAC [Concomitant]
     Route: 048
     Dates: start: 20050416, end: 20050418

REACTIONS (1)
  - RHABDOMYOLYSIS [None]
